FAERS Safety Report 25581732 (Version 1)
Quarter: 2025Q3

REPORT INFORMATION
  Report Type: Spontaneous
  Country: US (occurrence: US)
  Receive Date: 20250719
  Receipt Date: 20250719
  Transmission Date: 20251020
  Serious: No
  Sender: ELI LILLY AND COMPANY
  Company Number: US-ELI_LILLY_AND_COMPANY-US202507013535

PATIENT
  Age: 73 Year
  Sex: Male

DRUGS (2)
  1. ZEPBOUND [Suspect]
     Active Substance: TIRZEPATIDE
     Indication: Weight control
     Route: 058
     Dates: start: 20250701
  2. ZEPBOUND [Suspect]
     Active Substance: TIRZEPATIDE
     Indication: Blood pressure abnormal

REACTIONS (2)
  - Underdose [Unknown]
  - Weight increased [Unknown]

NARRATIVE: CASE EVENT DATE: 20250701
